FAERS Safety Report 7351363-9 (Version None)
Quarter: 2011Q1

REPORT INFORMATION
  Report Type: 
  Country: None (occurrence: None)
  Receive Date: 20110314
  Receipt Date: 20110302
  Transmission Date: 20110831
  Serious: Yes (Other)
  Sender: FDA-Public Use
  Company Number: PHHY2010US86639

PATIENT
  Sex: Female
  Weight: 77 kg

DRUGS (2)
  1. EXJADE [Suspect]
     Dosage: 500 MG,DAILY
     Route: 048
  2. EXJADE [Suspect]
     Indication: NEOPLASM
     Dosage: 1500 MG, QD
     Route: 048
     Dates: start: 20060620, end: 20100801

REACTIONS (1)
  - ARTHRITIS [None]
